FAERS Safety Report 20017788 (Version 1)
Quarter: 2021Q4

REPORT INFORMATION
  Report Type: Spontaneous
  Country: ES (occurrence: ES)
  Receive Date: 20211101
  Receipt Date: 20211101
  Transmission Date: 20220304
  Serious: Yes (Life-Threatening)
  Sender: FDA-Public Use
  Company Number: ES-SUN PHARMACEUTICAL INDUSTRIES LTD-2021R1-315665

PATIENT
  Age: 16 Year
  Sex: Female

DRUGS (5)
  1. DOXORUBICIN [Suspect]
     Active Substance: DOXORUBICIN
     Indication: Osteosarcoma
     Dosage: 330 MILLIGRAM/SQ. METER, UNK
     Route: 065
  2. DOXORUBICIN [Suspect]
     Active Substance: DOXORUBICIN
     Dosage: 225 MILLIGRAM/SQ. METER, UNK
     Route: 065
  3. CISPLATIN [Concomitant]
     Active Substance: CISPLATIN
     Indication: Osteosarcoma
     Dosage: 264 MILLIGRAM/SQ. METER
     Route: 065
  4. CISPLATIN [Concomitant]
     Active Substance: CISPLATIN
     Dosage: 720 MILLIGRAM/SQ. METER
     Route: 065
  5. METHOTREXATE [Concomitant]
     Active Substance: METHOTREXATE
     Indication: Osteosarcoma
     Dosage: 96 GRAM PER SQUARE METRE
     Route: 065

REACTIONS (2)
  - Mucosal toxicity [Recovering/Resolving]
  - Mucosal inflammation [Unknown]
